FAERS Safety Report 6444807-8 (Version None)
Quarter: 2009Q4

REPORT INFORMATION
  Report Type: 
  Country: None (occurrence: None)
  Receive Date: 20091118
  Receipt Date: 20091105
  Transmission Date: 20100525
  Serious: Yes (Other)
  Sender: FDA-Public Use
  Company Number: PHHY2009DE48647

PATIENT
  Age: 67 Year
  Sex: Female

DRUGS (1)
  1. FEMARA [Suspect]
     Indication: BREAST CANCER
     Dosage: 1 DAILY
     Route: 048
     Dates: start: 20060101

REACTIONS (4)
  - DRY SKIN [None]
  - MYALGIA [None]
  - SINUSITIS [None]
  - SLEEP DISORDER [None]
